FAERS Safety Report 6010545-9 (Version None)
Quarter: 2008Q4

REPORT INFORMATION
  Report Type: 
  Country: None (occurrence: None)
  Receive Date: 20081217
  Receipt Date: 20081217
  Transmission Date: 20090506
  Serious: Yes (Life-Threatening, Other)
  Sender: FDA-Public Use
  Company Number: None

PATIENT
  Sex: Female
  Weight: 97.977 kg

DRUGS (2)
  1. PROVENTIL [Suspect]
     Indication: ASTHMA
     Dosage: 2 PUFFS PRN ORAL DAILY
     Route: 048
  2. VENTOLIN [Suspect]
     Indication: ASTHMA
     Dosage: 2 PUFFS PRN ORAL DAILY
     Route: 048

REACTIONS (1)
  - DRUG INEFFECTIVE [None]
